FAERS Safety Report 18406903 (Version 4)
Quarter: 2021Q3

REPORT INFORMATION
  Report Type: Report from Study
  Country: US (occurrence: US)
  Receive Date: 20201020
  Receipt Date: 20210726
  Transmission Date: 20211014
  Serious: No
  Sender: FDA-Public Use
  Company Number: NVSC2020US280960

PATIENT
  Sex: Male

DRUGS (2)
  1. ENTRESTO [Suspect]
     Active Substance: SACUBITRIL\VALSARTAN
     Indication: CARDIAC FAILURE
     Dosage: 1 DF, BID(24.26 MG)
     Route: 048
  2. ENTRESTO [Suspect]
     Active Substance: SACUBITRIL\VALSARTAN
     Dosage: UNK (50 MG AND ANOTHER DOSE SPLITTING (25 MG))
     Route: 048

REACTIONS (7)
  - Underdose [Unknown]
  - Wrong technique in product usage process [Unknown]
  - Dizziness [Unknown]
  - Fluid retention [Unknown]
  - Drug ineffective [Unknown]
  - Hypotension [Not Recovered/Not Resolved]
  - Fatigue [Unknown]
